FAERS Safety Report 17182888 (Version 1)
Quarter: 2019Q4

REPORT INFORMATION
  Report Type: Spontaneous
  Country: US (occurrence: US)
  Receive Date: 20191219
  Receipt Date: 20191219
  Transmission Date: 20200122
  Serious: Yes (Other)
  Sender: FDA-Public Use
  Company Number: US-COOPERSURGICAL, INC.-US-2019CPS002012

PATIENT
  Age: 30 Year
  Sex: Female
  Weight: 54.88 kg

DRUGS (1)
  1. PARAGARD T 380A [Suspect]
     Active Substance: COPPER
     Indication: CONTRACEPTION
     Dosage: UNK
     Route: 015
     Dates: start: 20171222

REACTIONS (7)
  - Pregnancy with contraceptive device [Not Recovered/Not Resolved]
  - Protein urine present [Unknown]
  - Ectopic pregnancy [Recovered/Resolved]
  - Device dislocation [Not Recovered/Not Resolved]
  - Urine ketone body present [Unknown]
  - Drug ineffective [Recovered/Resolved]
  - Fungal infection [Unknown]

NARRATIVE: CASE EVENT DATE: 201901
